FAERS Safety Report 6436849-3 (Version None)
Quarter: 2009Q4

REPORT INFORMATION
  Report Type: 
  Country: None (occurrence: None)
  Receive Date: 20091111
  Receipt Date: 20090817
  Transmission Date: 20100525
  Serious: No
  Sender: FDA-Public Use
  Company Number: US-ALLERGAN-0911455US

PATIENT
  Age: 54 Year
  Sex: Female

DRUGS (8)
  1. SANCTURA XR [Suspect]
     Indication: HYPERTONIC BLADDER
     Dosage: 60 MG, QAM
     Route: 048
  2. TOPROL-XL [Concomitant]
     Indication: DRUG USE FOR UNKNOWN INDICATION
  3. SYNTHROID [Concomitant]
     Indication: THYROID DISORDER
  4. SINGULAIR [Concomitant]
     Indication: ASTHMA
  5. PROTONIX [Concomitant]
     Indication: DYSPEPSIA
  6. BENADRYL [Concomitant]
     Dosage: UNK
  7. INHALERS [Concomitant]
     Indication: ASTHMA
  8. IMITREX [Concomitant]
     Indication: MIGRAINE

REACTIONS (2)
  - DIZZINESS [None]
  - DRUG ADMINISTRATION ERROR [None]
